FAERS Safety Report 24279396 (Version 1)
Quarter: 2024Q3

REPORT INFORMATION
  Report Type: Spontaneous
  Country: CN (occurrence: CN)
  Receive Date: 20240903
  Receipt Date: 20240903
  Transmission Date: 20241017
  Serious: Yes (Hospitalization)
  Sender: ABBVIE
  Company Number: CN-ABBVIE-5901389

PATIENT
  Age: 74 Year
  Sex: Male
  Weight: 63 kg

DRUGS (2)
  1. VENETOCLAX [Suspect]
     Active Substance: VENETOCLAX
     Indication: Acute myeloid leukaemia
     Route: 048
     Dates: start: 20240717, end: 20240723
  2. AZACITIDINE [Suspect]
     Active Substance: AZACITIDINE
     Indication: Neoplasm prophylaxis
     Route: 058
     Dates: start: 20240717, end: 20240723

REACTIONS (2)
  - Myelosuppression [Recovering/Resolving]
  - Leukopenia [Recovering/Resolving]

NARRATIVE: CASE EVENT DATE: 20240721
